FAERS Safety Report 22325040 (Version 2)
Quarter: 2025Q2

REPORT INFORMATION
  Report Type: Spontaneous
  Country: ES (occurrence: ES)
  Receive Date: 20230516
  Receipt Date: 20250605
  Transmission Date: 20250717
  Serious: Yes (Hospitalization, Other)
  Sender: PFIZER
  Company Number: ES-Accord-357003

PATIENT
  Age: 63 Year
  Sex: Male
  Weight: 57.2 kg

DRUGS (38)
  1. PACLITAXEL [Suspect]
     Active Substance: PACLITAXEL
     Indication: Ductal adenocarcinoma of pancreas
     Dosage: 211.25 MG, 1X/DAY (DOSE GIVEN ON DAY 1, 8 AND 15)
     Dates: start: 20230109, end: 20230109
  2. PACLITAXEL [Suspect]
     Active Substance: PACLITAXEL
     Dosage: 211.25 MG, 1X/DAY (DOSE GIVEN ON DAY 1, 8 AND 15)
     Dates: start: 20230116, end: 20230116
  3. PACLITAXEL [Suspect]
     Active Substance: PACLITAXEL
     Dosage: 169 MG, 1X/DAY (DOSE GIVEN ON DAY 1, 8 AND 15)
     Dates: start: 20230206, end: 20230206
  4. PACLITAXEL [Suspect]
     Active Substance: PACLITAXEL
     Dosage: 216.25 MG, 1X/DAY (DOSE GIVEN ON DAY 1, 8 AND 15)
     Dates: start: 20230220, end: 20230220
  5. PACLITAXEL [Suspect]
     Active Substance: PACLITAXEL
     Dosage: 216.25 MG, 1X/DAY (DOSE GIVEN ON DAY 1, 8 AND 15)
     Dates: start: 20230227, end: 20230227
  6. PACLITAXEL [Suspect]
     Active Substance: PACLITAXEL
     Dosage: 216.25 MG, 1X/DAY (DOSE GIVEN ON DAY 1, 8 AND 15)
     Dates: start: 20230306, end: 20230306
  7. PACLITAXEL [Suspect]
     Active Substance: PACLITAXEL
     Dosage: 226.25 MG, 1X/DAY (DOSE GIVEN ON DAY 1, 8 AND 15)
     Dates: start: 20230321, end: 20230321
  8. PACLITAXEL [Suspect]
     Active Substance: PACLITAXEL
     Dosage: 226.25 MG, 1X/DAY (DOSE GIVEN ON DAY 1, 8 AND 15)
     Dates: start: 20230327, end: 20230327
  9. PACLITAXEL [Suspect]
     Active Substance: PACLITAXEL
     Dosage: 226.25 MG, 1X/DAY (DOSE GIVEN ON DAY 1, 8 AND 15)
     Dates: start: 20230403, end: 20230403
  10. GEMCITABINE HYDROCHLORIDE [Suspect]
     Active Substance: GEMCITABINE HYDROCHLORIDE
     Indication: Ductal adenocarcinoma of pancreas
     Dosage: 1690 MG, 1X/DAY (DOSE GIVEN ON DAY 1, 8 AND 15)
     Dates: start: 20230109, end: 20230109
  11. GEMCITABINE HYDROCHLORIDE [Suspect]
     Active Substance: GEMCITABINE HYDROCHLORIDE
     Dosage: 1690 MG, 1X/DAY (DOSE GIVEN ON DAY 1, 8 AND 15)
     Dates: start: 20230116, end: 20230116
  12. GEMCITABINE HYDROCHLORIDE [Suspect]
     Active Substance: GEMCITABINE HYDROCHLORIDE
     Dosage: 1352 MG, 1X/DAY (DOSE GIVEN ON DAY 1, 8 AND 15)
     Dates: start: 20230206, end: 20230206
  13. GEMCITABINE HYDROCHLORIDE [Suspect]
     Active Substance: GEMCITABINE HYDROCHLORIDE
     Dosage: 1730 MG, 1X/DAY (DOSE GIVEN ON DAY 1, 8 AND 15)
     Dates: start: 20230220, end: 20230220
  14. GEMCITABINE HYDROCHLORIDE [Suspect]
     Active Substance: GEMCITABINE HYDROCHLORIDE
     Dosage: 1730 MG, 1X/DAY (DOSE GIVEN ON DAY 1, 8 AND 15)
     Dates: start: 20230227, end: 20230227
  15. GEMCITABINE HYDROCHLORIDE [Suspect]
     Active Substance: GEMCITABINE HYDROCHLORIDE
     Dosage: 1730 MG, 1X/DAY (DOSE GIVEN ON DAY 1, 8 AND 15)
     Dates: start: 20230306, end: 20230306
  16. GEMCITABINE HYDROCHLORIDE [Suspect]
     Active Substance: GEMCITABINE HYDROCHLORIDE
     Dosage: 1810 MG, 1X/DAY (DOSE GIVEN ON DAY 1, 8 AND 15)
     Dates: start: 20230321, end: 20230321
  17. GEMCITABINE HYDROCHLORIDE [Suspect]
     Active Substance: GEMCITABINE HYDROCHLORIDE
     Dosage: 1810 MG, 1X/DAY (DOSE GIVEN ON DAY 1, 8 AND 15)
     Dates: start: 20230327, end: 20230327
  18. GEMCITABINE HYDROCHLORIDE [Suspect]
     Active Substance: GEMCITABINE HYDROCHLORIDE
     Dosage: 1810 MG, 1X/DAY (DOSE GIVEN ON DAY 1, 8 AND 15)
     Dates: start: 20230403, end: 20230403
  19. LEVOSULPIRIDE [Concomitant]
     Active Substance: LEVOSULPIRIDE
     Indication: Abdominal distension
     Dosage: 25 MG, 1X/DAY (3 IN 1 D)
     Route: 048
     Dates: start: 202212
  20. OMEPRAZOLE [Concomitant]
     Active Substance: OMEPRAZOLE
     Indication: Prophylaxis
     Route: 048
     Dates: start: 202205
  21. LOPERAMIDE [Concomitant]
     Active Substance: LOPERAMIDE
     Indication: Diarrhoea
     Route: 048
     Dates: start: 202205
  22. DOMPERIDONE [Concomitant]
     Active Substance: DOMPERIDONE
     Indication: Gastrointestinal disorder
     Route: 048
     Dates: start: 202212
  23. MEROPENEM [Concomitant]
     Active Substance: MEROPENEM
     Indication: Pyrexia
     Dates: start: 20230406
  24. IRON [Concomitant]
     Active Substance: IRON
     Indication: Anaemia
     Dates: start: 20230227
  25. ALBUMIN HUMAN [Concomitant]
     Active Substance: ALBUMIN HUMAN
     Indication: Generalised oedema
  26. HUMAN RED BLOOD CELL [Concomitant]
     Active Substance: HUMAN RED BLOOD CELL
     Indication: Anaemia
     Dosage: 2 DF, 1X/DAY (2 DOSAGE FORM ONCE)
     Dates: start: 20230307, end: 20230307
  27. SPIRONOLACTONE [Concomitant]
     Active Substance: SPIRONOLACTONE
     Indication: Generalised oedema
     Dosage: 100 MG, 1X/DAY
     Route: 048
     Dates: start: 20230130
  28. FUROSEMIDE [Concomitant]
     Active Substance: FUROSEMIDE
     Indication: Oedema peripheral
     Dosage: 40 MG, 1X/DAY
     Route: 048
     Dates: start: 20230130
  29. PLATELETS [Concomitant]
     Active Substance: HUMAN PLATELET, ALLOGENIC
     Indication: Haematotoxicity
  30. OTILONIUM BROMIDE [Concomitant]
     Active Substance: OTILONIUM BROMIDE
     Indication: Abdominal distension
     Dosage: 40 MG, 1X/DAY (3 IN 1 D)
     Route: 048
     Dates: start: 202212
  31. BROMAZEPAM [Concomitant]
     Active Substance: BROMAZEPAM
     Indication: Insomnia
     Dosage: 1.5 MG, 1X/DAY
     Route: 048
     Dates: start: 202205
  32. CIPROFLOXACIN [Concomitant]
     Active Substance: CIPROFLOXACIN
     Indication: Pyrexia
  33. ACETAMINOPHEN [Concomitant]
     Active Substance: ACETAMINOPHEN
     Indication: Abdominal pain
     Route: 048
     Dates: start: 202205
  34. PANCREATIN [Concomitant]
     Active Substance: PANCRELIPASE
     Indication: Dyspepsia
     Dosage: 70000 IU, 1X/DAY (3 IN 1 D)
     Route: 048
     Dates: start: 20230130
  35. FILGRASTIM [Concomitant]
     Active Substance: FILGRASTIM
     Indication: Haematotoxicity
  36. BEMIPARIN SODIUM [Concomitant]
     Active Substance: BEMIPARIN SODIUM
     Indication: Thrombosis prophylaxis
     Dosage: 7500 IU, 1X/DAY
     Route: 058
     Dates: start: 20230130
  37. FUROSEMIDE [Concomitant]
     Active Substance: FUROSEMIDE
     Indication: Generalised oedema
  38. DYNAMOGEN [Concomitant]
     Indication: Nutritional supplementation
     Dosage: 0.14 MG, WEEKLY
     Route: 048
     Dates: start: 2013

REACTIONS (4)
  - Pyrexia [Recovered/Resolved]
  - Haematotoxicity [Recovered/Resolved]
  - Ascites [Recovered/Resolved]
  - Off label use [Unknown]

NARRATIVE: CASE EVENT DATE: 20230109
